FAERS Safety Report 17765582 (Version 1)
Quarter: 2020Q2

REPORT INFORMATION
  Report Type: Spontaneous
  Country: CA (occurrence: CA)
  Receive Date: 20200509
  Receipt Date: 20200509
  Transmission Date: 20200714
  Serious: Yes (Other)
  Sender: FDA-Public Use
  Company Number: None

PATIENT
  Age: 45 Year
  Sex: Female
  Weight: 58.5 kg

DRUGS (7)
  1. M-ESLON [Concomitant]
     Active Substance: MORPHINE SULFATE
  2. TOPIRAMATE. [Concomitant]
     Active Substance: TOPIRAMATE
  3. ELIQUIS [Concomitant]
     Active Substance: APIXABAN
  4. STADEX [Concomitant]
  5. ZOFRAN [Concomitant]
     Active Substance: ONDANSETRON HYDROCHLORIDE
  6. LACTATED RINGERS AND DEXTROSE SOLUTION [Suspect]
     Active Substance: CALCIUM CHLORIDE\DEXTROSE\DEXTROSE MONOHYDRATE\POTASSIUM CHLORIDE\SODIUM CHLORIDE\SODIUM LACTATE
     Indication: ELECTROLYTE IMBALANCE
     Dosage: ?          QUANTITY:1 IV;OTHER FREQUENCY:ONCE;?
     Route: 042
     Dates: start: 20200504, end: 20200504
  7. GABAPENTIN. [Concomitant]
     Active Substance: GABAPENTIN

REACTIONS (4)
  - Contusion [None]
  - Injection site streaking [None]
  - Peripheral swelling [None]
  - Infusion related reaction [None]

NARRATIVE: CASE EVENT DATE: 20200504
